FAERS Safety Report 5565932-X (Version None)
Quarter: 2007Q4

REPORT INFORMATION
  Report Type: 
  Country: None (occurrence: None)
  Receive Date: 20071219
  Receipt Date: 20071214
  Transmission Date: 20080405
  Serious: Yes (Death, Hospitalization, Other)
  Sender: FDA-Public Use
  Company Number: PHEH2005US10697

PATIENT
  Age: 52 Year
  Sex: Female
  Weight: 61.678 kg

DRUGS (11)
  1. AREDIA [Suspect]
  2. ZOMETA [Suspect]
  3. FASLODEX [Concomitant]
     Dosage: UNK, QMO
     Route: 030
  4. DEPAKOTE [Concomitant]
  5. TYLENOL [Concomitant]
  6. CLONAZEPAM [Concomitant]
  7. ALBUTEROL [Concomitant]
  8. OXYCODONE HCL [Concomitant]
  9. LEXAPRO [Concomitant]
  10. TAMOXIFEN CITRATE [Concomitant]
     Dosage: 20 MG, QD
  11. CALCIUM [Concomitant]

REACTIONS (42)
  - ABSCESS JAW [None]
  - ACTINOMYCOSIS [None]
  - ACUPUNCTURE [None]
  - ANXIETY [None]
  - APHTHOUS STOMATITIS [None]
  - ARTHRALGIA [None]
  - ASTHMA [None]
  - BONE DEBRIDEMENT [None]
  - BONE DISORDER [None]
  - BONE GRAFT [None]
  - BRONCHITIS CHRONIC [None]
  - CELLULITIS [None]
  - CULTURE TISSUE SPECIMEN POSITIVE [None]
  - CYST [None]
  - DEATH [None]
  - DENTAL OPERATION [None]
  - DEPRESSION [None]
  - DISEASE PROGRESSION [None]
  - FATIGUE [None]
  - GINGIVAL ABSCESS [None]
  - GINGIVAL ULCERATION [None]
  - HYPERBARIC OXYGEN THERAPY [None]
  - IMPAIRED HEALING [None]
  - JAW DISORDER [None]
  - JAW OPERATION [None]
  - MANDIBULAR PROSTHESIS USER [None]
  - MENTAL STATUS CHANGES [None]
  - METASTASES TO CENTRAL NERVOUS SYSTEM [None]
  - METASTATIC NEOPLASM [None]
  - ORAL INFECTION [None]
  - OSTEOARTHRITIS [None]
  - OSTEOMYELITIS [None]
  - OSTEONECROSIS [None]
  - PAIN [None]
  - PAIN IN JAW [None]
  - SENSITIVITY OF TEETH [None]
  - SUBMANDIBULAR MASS [None]
  - SUTURE RELATED COMPLICATION [None]
  - THORACOTOMY [None]
  - TOOTH DISORDER [None]
  - TOOTH EXTRACTION [None]
  - TOOTH FRACTURE [None]
